FAERS Safety Report 9112487 (Version 2)
Quarter: 2013Q1

REPORT INFORMATION
  Report Type: Spontaneous
  Country: US (occurrence: US)
  Receive Date: 20130211
  Receipt Date: 20130305
  Transmission Date: 20140127
  Serious: No
  Sender: FDA-Public Use
  Company Number: US-JNJFOC-20130200282

PATIENT
  Sex: Female
  Weight: 45.36 kg

DRUGS (7)
  1. DURAGESIC [Suspect]
     Indication: PAIN
     Dosage: CHANGE ONE 100 UG/HR PATCH EVERY NIGHT
     Route: 062
  2. TOPAMAX [Concomitant]
     Indication: NEUROPATHY PERIPHERAL
     Dosage: CHANGE ONE 100 UG/HR PATCH EVERY NIGHT
     Route: 048
     Dates: start: 2010
  3. TOPAMAX [Concomitant]
     Indication: NEUROPATHY PERIPHERAL
     Dosage: CHANGE ONE 100 UG/HR PATCH EVERY NIGHT
     Route: 048
     Dates: start: 2010
  4. CYMBALTA [Concomitant]
     Indication: DEPRESSION
     Dosage: CHANGE ONE 100 UG/HR PATCH EVERY NIGHT
     Route: 048
     Dates: start: 2010
  5. CYMBALTA [Concomitant]
     Indication: PAIN
     Dosage: CHANGE ONE 100 UG/HR PATCH EVERY NIGHT
     Route: 048
     Dates: start: 2010
  6. SYNTHROID [Concomitant]
     Indication: HYPOTHYROIDISM
     Dosage: CHANGE ONE 100 UG/HR PATCH EVERY NIGHT
     Route: 048
     Dates: start: 1994
  7. MORPHINE [Concomitant]
     Indication: PAIN
     Dosage: CHANGE ONE 100 UG/HR PATCH EVERY NIGHT
     Route: 048

REACTIONS (5)
  - Wrong technique in drug usage process [Recovered/Resolved]
  - Incorrect drug administration duration [Not Recovered/Not Resolved]
  - Therapeutic response decreased [Recovered/Resolved]
  - Hyperhidrosis [Recovered/Resolved]
  - Malaise [Recovered/Resolved]
